FAERS Safety Report 4818217-0 (Version None)
Quarter: 2005Q4

REPORT INFORMATION
  Report Type: 
  Country: None (occurrence: None)
  Receive Date: 20051102
  Receipt Date: 20051018
  Transmission Date: 20060501
  Serious: Yes (Hospitalization)
  Sender: FDA-Public Use
  Company Number: FRWYE066418OCT05

PATIENT
  Age: 79 Year
  Sex: Female
  Weight: 72 kg

DRUGS (3)
  1. ENBREL [Suspect]
     Indication: RHEUMATOID ARTHRITIS
     Dosage: 50 MG WEEKLY
     Route: 058
     Dates: start: 20041222, end: 20050609
  2. CORTANCYL [Suspect]
     Indication: RHEUMATOID ARTHRITIS
     Dosage: 10 MG (NO MORE SPECIFICATION)
     Route: 048
  3. METHOTREXATE [Suspect]
     Route: 048

REACTIONS (2)
  - KNEE ARTHROPLASTY [None]
  - SEPTIC ARTHRITIS STAPHYLOCOCCAL [None]
